FAERS Safety Report 8975738 (Version 3)
Quarter: 2017Q1

REPORT INFORMATION
  Report Type: Report from Study
  Country: US (occurrence: US)
  Receive Date: 20121219
  Receipt Date: 20170216
  Transmission Date: 20170429
  Serious: Yes (Death, Other)
  Sender: FDA-Public Use
  Company Number: US-CELGENEUS-163-21880-11060934

PATIENT

DRUGS (8)
  1. REVLIMID [Suspect]
     Active Substance: LENALIDOMIDE
     Indication: B-CELL LYMPHOMA
     Dosage: 15-20-25 MG
     Route: 048
  2. DOXORUBICIN [Suspect]
     Active Substance: DOXORUBICIN
     Indication: B-CELL LYMPHOMA
     Route: 065
  3. VINCRISTINE [Suspect]
     Active Substance: VINCRISTINE
     Indication: B-CELL LYMPHOMA
     Route: 065
  4. PREDNISONE. [Suspect]
     Active Substance: PREDNISONE
     Indication: B-CELL LYMPHOMA
     Route: 065
  5. PEGFILGRASTIM [Concomitant]
     Active Substance: PEGFILGRASTIM
     Indication: PRODUCT USED FOR UNKNOWN INDICATION
     Dosage: 6 MILLIGRAM
     Route: 058
  6. ASPIRIN. [Concomitant]
     Active Substance: ASPIRIN
     Indication: PROPHYLAXIS
     Dosage: 81 MILLIGRAM
     Route: 065
  7. CYCLOPHOSPHAMIDE. [Suspect]
     Active Substance: CYCLOPHOSPHAMIDE
     Indication: B-CELL LYMPHOMA
     Route: 065
  8. RITUXIMAB [Suspect]
     Active Substance: RITUXIMAB
     Indication: B-CELL LYMPHOMA
     Route: 065

REACTIONS (33)
  - Febrile neutropenia [Unknown]
  - Neutropenia [Unknown]
  - Dehydration [Unknown]
  - Vomiting [Unknown]
  - Diffuse large B-cell lymphoma [Fatal]
  - Stomatitis [Unknown]
  - Pneumonia [Unknown]
  - Blood potassium decreased [Unknown]
  - Pneumonitis [Unknown]
  - Transaminases increased [Unknown]
  - Nausea [Unknown]
  - Intra-abdominal haemorrhage [Unknown]
  - Fatigue [Unknown]
  - Anaemia [Unknown]
  - Glioblastoma [Unknown]
  - Blood albumin decreased [Unknown]
  - Acute myeloid leukaemia [Unknown]
  - White blood cell count decreased [Unknown]
  - Intestinal perforation [Fatal]
  - Abdominal sepsis [Fatal]
  - Left ventricular dysfunction [Unknown]
  - Blood sodium decreased [Unknown]
  - Thrombosis [Unknown]
  - Weight decreased [Unknown]
  - Colon cancer metastatic [Unknown]
  - Vascular access complication [Unknown]
  - Thrombocytopenia [Unknown]
  - Laryngeal pain [Unknown]
  - Skin infection [Unknown]
  - Lymphocyte count decreased [Unknown]
  - Urinary tract infection [Unknown]
  - Dyspnoea [Unknown]
  - Upper respiratory tract infection [Unknown]
